FAERS Safety Report 9598051 (Version 1)
Quarter: 2013Q4

REPORT INFORMATION
  Report Type: Spontaneous
  Country: US (occurrence: US)
  Receive Date: 20131004
  Receipt Date: 20131004
  Transmission Date: 20140711
  Serious: No
  Sender: FDA-Public Use
  Company Number: US-AMGEN-USASP2013022270

PATIENT
  Age: 29 Year
  Sex: Female
  Weight: 80.73 kg

DRUGS (2)
  1. ENBREL [Suspect]
     Indication: PSORIASIS
     Dosage: UNK
     Dates: start: 2011, end: 2011
  2. HUMALOG [Concomitant]
     Dosage: UNK

REACTIONS (3)
  - Upper respiratory tract infection [Unknown]
  - Nasopharyngitis [Unknown]
  - Ear infection [Unknown]
